FAERS Safety Report 20421379 (Version 1)
Quarter: 2022Q1

REPORT INFORMATION
  Report Type: Spontaneous
  Country: US (occurrence: US)
  Receive Date: 20220203
  Receipt Date: 20220203
  Transmission Date: 20220423
  Serious: No
  Sender: FDA-Public Use
  Company Number: US-PFIZER INC-202101161926

PATIENT
  Age: 48 Year
  Sex: Female
  Weight: 149.66 kg

DRUGS (2)
  1. IBRANCE [Suspect]
     Active Substance: PALBOCICLIB
     Indication: Breast cancer female
     Dosage: DAILY X 21 DAYS THEN 7 DAYS OFF
     Route: 048
     Dates: start: 20210810
  2. TYLENOL [Concomitant]
     Active Substance: ACETAMINOPHEN
     Dosage: UNK

REACTIONS (4)
  - COVID-19 [Unknown]
  - Hot flush [Not Recovered/Not Resolved]
  - Migraine [Unknown]
  - Alopecia [Recovering/Resolving]
